FAERS Safety Report 8394799 (Version 4)
Quarter: 2012Q4

REPORT INFORMATION
  Report Type: 
  Country: US (occurrence: US)
  Receive Date: 20120207
  Receipt Date: 20121221
  Transmission Date: 20130627
  Serious: Yes (Hospitalization)
  Sender: FDA-Public Use
  Company Number: US-BAYER-2012-011010

PATIENT
  Age: 29 Year
  Sex: Female
  Weight: 84 kg

DRUGS (7)
  1. YASMIN [Suspect]
     Indication: PRODUCT USED FOR UNKNOWN INDICATION
     Dosage: UNK
     Dates: start: 200308, end: 20031212
  2. SYNTHROID [Concomitant]
     Indication: THYROID FUNCTION DECREASED
     Dosage: 0.025 mg, UNK
     Route: 048
     Dates: start: 1998
  3. ZOLOFT [Concomitant]
     Dosage: 50 mg, UNK
  4. PERCOCET [Concomitant]
     Indication: PLEURITIC PAIN
  5. MORPHINE [Concomitant]
     Indication: PLEURITIC PAIN
  6. CELEBREX [Concomitant]
     Indication: PLEURITIC PAIN
  7. VIOXX [Concomitant]

REACTIONS (12)
  - Pulmonary embolism [Recovered/Resolved]
  - Injury [Recovered/Resolved]
  - Dyspnoea [Recovered/Resolved]
  - Back pain [Recovered/Resolved]
  - General physical health deterioration [Recovered/Resolved]
  - Asthenia [Recovered/Resolved]
  - Emotional distress [None]
  - Anxiety [None]
  - Anhedonia [None]
  - Fear [None]
  - Mental disorder [None]
  - Pulmonary infarction [None]
